FAERS Safety Report 18296282 (Version 1)
Quarter: 2020Q3

REPORT INFORMATION
  Report Type: Spontaneous
  Country: US (occurrence: US)
  Receive Date: 20200922
  Receipt Date: 20200922
  Transmission Date: 20201103
  Serious: No
  Sender: FDA-Public Use
  Company Number: US-VIVUS, INC.-2020V1000019

PATIENT
  Age: 54 Year
  Sex: Female
  Weight: 65.38 kg

DRUGS (3)
  1. QSYMIA [Suspect]
     Active Substance: PHENTERMINE HYDROCHLORIDE\TOPIRAMATE
     Indication: WEIGHT DECREASED
     Route: 048
  2. ATENOLOL. [Concomitant]
     Active Substance: ATENOLOL
     Indication: BLOOD PRESSURE IMMEASURABLE
     Route: 048
  3. QSYMIA [Suspect]
     Active Substance: PHENTERMINE HYDROCHLORIDE\TOPIRAMATE
     Indication: WEIGHT DECREASED
     Route: 048

REACTIONS (3)
  - Ocular hyperaemia [Recovered/Resolved with Sequelae]
  - Inappropriate schedule of product administration [Not Recovered/Not Resolved]
  - Mydriasis [Recovered/Resolved with Sequelae]

NARRATIVE: CASE EVENT DATE: 20200120
